FAERS Safety Report 19967003 (Version 1)
Quarter: 2021Q4

REPORT INFORMATION
  Report Type: Spontaneous
  Country: US (occurrence: US)
  Receive Date: 20211019
  Receipt Date: 20211019
  Transmission Date: 20220303
  Serious: Yes (Other)
  Sender: FDA-Public Use
  Company Number: US-ALKEM LABORATORIES LIMITED-US-ALKEM-2021-01231

PATIENT
  Age: 73 Year
  Sex: Male

DRUGS (1)
  1. DULOXETINE HYDROCHLORIDE [Suspect]
     Active Substance: DULOXETINE HYDROCHLORIDE
     Indication: Product used for unknown indication
     Dosage: 60 MILLIGRAM, BID
     Route: 065

REACTIONS (5)
  - Hallucination [Recovered/Resolved]
  - Tremor [Recovering/Resolving]
  - Motor dysfunction [Recovering/Resolving]
  - Middle insomnia [Recovering/Resolving]
  - Rapid eye movement sleep behaviour disorder [Not Recovered/Not Resolved]
